FAERS Safety Report 4423571-8 (Version None)
Quarter: 2004Q3

REPORT INFORMATION
  Report Type: 
  Country: None (occurrence: None)
  Receive Date: 20040811
  Receipt Date: 20040730
  Transmission Date: 20050211
  Serious: Yes (Hospitalization)
  Sender: FDA-Public Use
  Company Number: PHEH2004US08267

PATIENT
  Age: 58 Year
  Sex: Female

DRUGS (9)
  1. AREDIA [Suspect]
     Indication: BREAST CANCER METASTATIC
     Dosage: 90 MG, QMO
     Dates: start: 20030228, end: 20040701
  2. PREDNISONE [Concomitant]
  3. PEPCID [Concomitant]
  4. TAXOL [Concomitant]
  5. ARANESP [Concomitant]
     Indication: ANAEMIA
     Dates: start: 20031212
  6. LISINOPRIL [Concomitant]
  7. METFORMIN HCL [Concomitant]
  8. ZAROXOLYN [Concomitant]
  9. OXYCONTIN [Concomitant]

REACTIONS (11)
  - ASPARTATE AMINOTRANSFERASE INCREASED [None]
  - BLISTER [None]
  - BLOOD BILIRUBIN INCREASED [None]
  - CHILLS [None]
  - COOMBS DIRECT TEST POSITIVE [None]
  - HAEMOGLOBIN DECREASED [None]
  - HAEMOLYTIC ANAEMIA [None]
  - PLATELET COUNT DECREASED [None]
  - PYREXIA [None]
  - RETICULOCYTE COUNT INCREASED [None]
  - THROMBOCYTOPENIA [None]
